FAERS Safety Report 18414901 (Version 1)
Quarter: 2020Q4

REPORT INFORMATION
  Report Type: Spontaneous
  Country: US (occurrence: US)
  Receive Date: 20201021
  Receipt Date: 20201021
  Transmission Date: 20210114
  Serious: Yes (Disabling, Other)
  Sender: FDA-Public Use
  Company Number: None

PATIENT
  Age: 75 Year
  Sex: Male
  Weight: 83.91 kg

DRUGS (9)
  1. DIGIXON [Concomitant]
  2. ASPIRIN. [Concomitant]
     Active Substance: ASPIRIN
  3. FISH OIL [Concomitant]
     Active Substance: FISH OIL
  4. MULTIVITAMIN [Concomitant]
     Active Substance: VITAMINS
  5. AMLODIPINE [Suspect]
     Active Substance: AMLODIPINE BESYLATE
  6. ATORVASTIN [Suspect]
     Active Substance: ATORVASTATIN
  7. ZELJAUS [Concomitant]
  8. ENBREL [Suspect]
     Active Substance: ETANERCEPT
     Indication: RHEUMATOID ARTHRITIS
     Route: 058
     Dates: start: 201012, end: 20191112
  9. CALCIUM [Concomitant]
     Active Substance: CALCIUM

REACTIONS (12)
  - Tremor [None]
  - Balance disorder [None]
  - Dysphagia [None]
  - Neuropathy peripheral [None]
  - Hypoaesthesia [None]
  - Gait disturbance [None]
  - Muscle spasms [None]
  - Joint stiffness [None]
  - Dysarthria [None]
  - Eye pain [None]
  - Chills [None]
  - Cerebral palsy [None]
